FAERS Safety Report 5451523-8 (Version None)
Quarter: 2007Q3

REPORT INFORMATION
  Report Type: 
  Country: None (occurrence: None)
  Receive Date: 20070911
  Receipt Date: 20070911
  Transmission Date: 20080115
  Serious: Yes (Other)
  Sender: FDA-Public Use
  Company Number: None

PATIENT
  Sex: Female
  Weight: 81 kg

DRUGS (2)
  1. DOXIL [Suspect]
     Indication: OVARIAN CANCER
     Dosage: 30 MG/M2 Q3W - CYCLE 1 + IV BOLUS
     Route: 040
     Dates: start: 20070511, end: 20070622
  2. BEVACIZUMAB GLAXOSMITHKLINE [Suspect]
     Indication: OVARIAN CANCER
     Dosage: 15 MG/KG Q3W - CYCLE 2 + ON IV BOLUS
     Route: 040
     Dates: start: 20070511, end: 20070622

REACTIONS (4)
  - DYSPHAGIA [None]
  - MUCOSAL INFLAMMATION [None]
  - OESOPHAGITIS [None]
  - PAIN [None]
